FAERS Safety Report 8163696-7 (Version None)
Quarter: 2012Q1

REPORT INFORMATION
  Report Type: 
  Country: None (occurrence: None)
  Receive Date: 20120224
  Receipt Date: 20120210
  Transmission Date: 20120608
  Serious: Yes (Other)
  Sender: FDA-Public Use
  Company Number: PHEH2012US003679

PATIENT
  Sex: Female

DRUGS (1)
  1. AREDIA [Suspect]
     Indication: MULTIPLE MYELOMA

REACTIONS (8)
  - EPISTAXIS [None]
  - MULTIPLE MYELOMA [None]
  - DYSPNOEA [None]
  - OSTEOPENIA [None]
  - FEBRILE NEUTROPENIA [None]
  - SINUSITIS [None]
  - NEOPLASM PROGRESSION [None]
  - BREAST CANCER [None]
